FAERS Safety Report 5327467-9 (Version None)
Quarter: 2007Q2

REPORT INFORMATION
  Report Type: 
  Country: None (occurrence: None)
  Receive Date: 20070517
  Receipt Date: 20070129
  Transmission Date: 20071010
  Serious: Yes (Hospitalization)
  Sender: FDA-Public Use
  Company Number: US-JNJFOC-20070104648

PATIENT
  Age: 54 Year
  Sex: Female

DRUGS (4)
  1. TRAMADOL HCL [Suspect]
     Indication: DRUG USE FOR UNKNOWN INDICATION
     Route: 048
  2. BENZO [Concomitant]
     Route: 065
  3. LITHIUM EXTENDED RELEASE [Concomitant]
     Route: 065
  4. ATYPICAL ANTIPSYCHOTIC [Concomitant]
     Route: 065

REACTIONS (2)
  - BLOOD POTASSIUM DECREASED [None]
  - INTENTIONAL DRUG MISUSE [None]
